FAERS Safety Report 9831898 (Version 2)
Quarter: 2014Q1

REPORT INFORMATION
  Report Type: Spontaneous
  Country: US (occurrence: US)
  Receive Date: 20140121
  Receipt Date: 20140325
  Transmission Date: 20141002
  Serious: Yes (Death, Other)
  Sender: FDA-Public Use
  Company Number: US-PFIZER INC-2014015133

PATIENT
  Age: 69 Year
  Sex: Male

DRUGS (2)
  1. SUTENT [Suspect]
     Indication: RENAL CELL CARCINOMA
     Dosage: 50 MG, DAILY
     Route: 048
     Dates: start: 20130327
  2. SUTENT [Suspect]
     Dosage: 200 MG, DAILY CYCLIC (4 WEEKS ON, 2 WEEKS OFF)
     Route: 048
     Dates: start: 201304, end: 201312

REACTIONS (7)
  - Disease progression [Fatal]
  - Renal cell carcinoma [Fatal]
  - Second primary malignancy [Unknown]
  - Chronic myeloid leukaemia [Unknown]
  - Second primary malignancy [Unknown]
  - Small cell lung cancer [Unknown]
  - Off label use [Unknown]
